FAERS Safety Report 7300967-8 (Version None)
Quarter: 2011Q1

REPORT INFORMATION
  Report Type: 
  Country: None (occurrence: None)
  Receive Date: 20110218
  Receipt Date: 20110203
  Transmission Date: 20110831
  Serious: Yes (Other)
  Sender: FDA-Public Use
  Company Number: IT-CELGENEUS-083-21880-11020366

PATIENT
  Sex: Female

DRUGS (6)
  1. LANSOPRAZOLE [Concomitant]
     Route: 065
     Dates: start: 20100721
  2. DEXAMETHASONE [Suspect]
     Indication: MULTIPLE MYELOMA
     Route: 048
     Dates: start: 20100721, end: 20101107
  3. ASPIRIN [Concomitant]
     Route: 065
     Dates: start: 20100721
  4. TALAVIR [Concomitant]
     Route: 065
     Dates: start: 20110107
  5. REVLIMID [Suspect]
     Indication: MULTIPLE MYELOMA
     Route: 048
     Dates: start: 20100721, end: 20101107
  6. CARDIOVASC [Concomitant]
     Route: 065
     Dates: start: 20100301

REACTIONS (1)
  - BREAST CANCER IN SITU [None]
